FAERS Safety Report 9285515 (Version 1)
Quarter: 2013Q2

REPORT INFORMATION
  Report Type: Spontaneous
  Country: US (occurrence: US)
  Receive Date: 20130513
  Receipt Date: 20130513
  Transmission Date: 20140414
  Serious: Yes (Other)
  Sender: FDA-Public Use
  Company Number: US-PFIZER INC-2013145061

PATIENT
  Age: 81 Year
  Sex: Female
  Weight: 45.81 kg

DRUGS (7)
  1. ADVIL [Suspect]
     Indication: ARTHRALGIA
     Dosage: 200 MG, 2X/DAY
     Dates: start: 20130501, end: 20130503
  2. CORTISONE [Suspect]
     Indication: URTICARIA
     Dosage: UNK
     Dates: start: 20130503
  3. CORTISONE [Suspect]
     Indication: URTICARIA
     Dosage: UNK
     Dates: start: 20130504
  4. BENADRYL [Suspect]
     Indication: URTICARIA
     Dosage: UNK
     Dates: start: 20130506, end: 20130506
  5. ZYRTEC [Suspect]
     Indication: URTICARIA
     Dosage: UNK
     Dates: start: 20130507
  6. CLARITIN [Suspect]
     Indication: URTICARIA
     Dosage: UNK
     Dates: start: 20130507
  7. NOVOLIN [Concomitant]
     Indication: DIABETES MELLITUS
     Dosage: UNK

REACTIONS (2)
  - Drug ineffective [Unknown]
  - Urticaria [Not Recovered/Not Resolved]
